FAERS Safety Report 16476680 (Version 2)
Quarter: 2024Q4

REPORT INFORMATION
  Report Type: Spontaneous
  Country: NL (occurrence: NL)
  Receive Date: 20190626
  Receipt Date: 20241025
  Transmission Date: 20250114
  Serious: Yes (Life-Threatening, Hospitalization, Other)
  Sender: LUPIN
  Company Number: None

PATIENT
  Age: 68 Year
  Sex: Male

DRUGS (7)
  1. IMATINIB MESYLATE [Interacting]
     Active Substance: IMATINIB MESYLATE
     Indication: Chronic myeloid leukaemia
     Dosage: 400 MILLIGRAM, INITIAL DOSE OF 400 MG
     Route: 065
  2. IMATINIB MESYLATE [Interacting]
     Active Substance: IMATINIB MESYLATE
     Dosage: UNK, MAINTENANCE THERAPY
     Route: 065
  3. IMATINIB MESYLATE [Interacting]
     Active Substance: IMATINIB MESYLATE
     Dosage: 20 MILLIGRAM
     Route: 065
  4. CLOPIDOGREL [Interacting]
     Active Substance: CLOPIDOGREL BISULFATE
     Indication: Product used for unknown indication
     Dosage: UNK, FOR A FEW MONTHS
     Route: 065
  5. SIMVASTATIN [Interacting]
     Active Substance: SIMVASTATIN
     Indication: Product used for unknown indication
     Dosage: UNK
     Route: 065
  6. ALFACALCIDOL [Interacting]
     Active Substance: ALFACALCIDOL
     Indication: Product used for unknown indication
     Dosage: UNK
     Route: 065
  7. BUMETANIDE [Concomitant]
     Active Substance: BUMETANIDE
     Indication: Product used for unknown indication
     Dosage: UNK, FOR A FEW MONTHS
     Route: 065

REACTIONS (5)
  - Idiopathic interstitial pneumonia [Recovered/Resolved]
  - Pulmonary toxicity [Recovered/Resolved]
  - Drug interaction [Recovered/Resolved]
  - Interstitial lung disease [Recovered/Resolved]
  - Organising pneumonia [Recovered/Resolved]
